FAERS Safety Report 20714239 (Version 1)
Quarter: 2022Q2

REPORT INFORMATION
  Report Type: Spontaneous
  Country: US (occurrence: None)
  Receive Date: 20220414
  Receipt Date: 20220414
  Transmission Date: 20220721
  Serious: Yes (Hospitalization)
  Sender: FDA-Public Use
  Company Number: None

PATIENT
  Age: 54 Year
  Sex: Male

DRUGS (1)
  1. OPSUMIT [Suspect]
     Active Substance: MACITENTAN
     Indication: Pulmonary arterial hypertension
     Dosage: 10MG DAILY ORAL?
     Route: 048

REACTIONS (6)
  - Gastrointestinal haemorrhage [None]
  - Sepsis [None]
  - Renal abscess [None]
  - Therapy interrupted [None]
  - Dyspnoea [None]
  - Disease complication [None]

NARRATIVE: CASE EVENT DATE: 20220412
